FAERS Safety Report 15709476 (Version 1)
Quarter: 2018Q4

REPORT INFORMATION
  Report Type: Spontaneous
  Country: BR (occurrence: BR)
  Receive Date: 20181211
  Receipt Date: 20181211
  Transmission Date: 20190205
  Serious: Yes (Hospitalization, Other)
  Sender: FDA-Public Use
  Company Number: BR-PFIZER INC-2018501896

PATIENT
  Age: 80 Year
  Sex: Female

DRUGS (3)
  1. LYRICA [Suspect]
     Active Substance: PREGABALIN
     Indication: NODULE
  2. LYRICA [Suspect]
     Active Substance: PREGABALIN
     Indication: HEPATIC PAIN
     Dosage: ONE CAPSULE BEFORE SHE GOES TO SLEEP
     Dates: start: 20181202
  3. QUESTRAN [Concomitant]
     Active Substance: CHOLESTYRAMINE

REACTIONS (4)
  - Back injury [Recovered/Resolved]
  - Drug effect delayed [Unknown]
  - Product use in unapproved indication [Unknown]
  - Fall [Recovered/Resolved]

NARRATIVE: CASE EVENT DATE: 20181202
